FAERS Safety Report 20208595 (Version 2)
Quarter: 2022Q1

REPORT INFORMATION
  Report Type: Report from Study
  Country: US (occurrence: US)
  Receive Date: 20211220
  Receipt Date: 20220107
  Transmission Date: 20220424
  Serious: Yes (Other)
  Sender: FDA-Public Use
  Company Number: US-TEVA-2021-US-1989017

PATIENT
  Age: 65 Year
  Sex: Male
  Weight: 179 kg

DRUGS (6)
  1. PRAVASTATIN [Suspect]
     Active Substance: PRAVASTATIN
     Indication: Hyperlipidaemia
     Route: 048
     Dates: start: 20210225
  2. PRAVASTATIN [Suspect]
     Active Substance: PRAVASTATIN
     Route: 048
     Dates: start: 20211129
  3. CLARITIN [Suspect]
     Active Substance: LORATADINE
     Indication: Seasonal allergy
     Route: 048
     Dates: start: 2014
  4. TOZINAMERAN [Suspect]
     Active Substance: TOZINAMERAN
     Indication: COVID-19 immunisation
     Route: 030
     Dates: start: 20200825
  5. TOZINAMERAN [Suspect]
     Active Substance: TOZINAMERAN
     Route: 030
     Dates: start: 20200915
  6. TOZINAMERAN [Suspect]
     Active Substance: TOZINAMERAN
     Route: 030
     Dates: start: 20210927

REACTIONS (1)
  - Prostate cancer stage II [Recovered/Resolved]

NARRATIVE: CASE EVENT DATE: 20210215
